FAERS Safety Report 10417873 (Version 1)
Quarter: 2014Q2

REPORT INFORMATION
  Report Type: Spontaneous
  Country: US (occurrence: None)
  Receive Date: 20140609
  Receipt Date: 20140609
  Transmission Date: 20141212
  Serious: No
  Sender: FDA-Public Use
  Company Number: 2014TUS000854

PATIENT
  Age: 50 Year
  Sex: Female

DRUGS (2)
  1. BRINTELLIX [Suspect]
     Indication: DEPRESSION
     Route: 048
     Dates: start: 2014, end: 2014
  2. METHADONE [Concomitant]

REACTIONS (1)
  - Rash generalised [None]
